FAERS Safety Report 14302346 (Version 1)
Quarter: 2017Q4

REPORT INFORMATION
  Report Type: Spontaneous
  Country: US (occurrence: US)
  Receive Date: 20171219
  Receipt Date: 20171219
  Transmission Date: 20180321
  Serious: No
  Sender: FDA-Public Use
  Company Number: US-SUPERNUS PHARMACEUTICALS, INC.-2017SUP00203

PATIENT
  Age: 25 Year
  Sex: Male

DRUGS (2)
  1. FYCOMPA [Suspect]
     Active Substance: PERAMPANEL
  2. TROKENDI XR [Suspect]
     Active Substance: TOPIRAMATE

REACTIONS (3)
  - Drug interaction [Unknown]
  - Vision blurred [Unknown]
  - Diplopia [Unknown]
